FAERS Safety Report 8824050 (Version 2)
Quarter: 2012Q4

REPORT INFORMATION
  Report Type: 
  Country: US (occurrence: US)
  Receive Date: 20121004
  Receipt Date: 20121029
  Transmission Date: 20130627
  Serious: Yes (Other)
  Sender: FDA-Public Use
  Company Number: US-AMGEN-USASP2012061133

PATIENT
  Age: 64 Year
  Sex: Female
  Weight: 58.5 kg

DRUGS (5)
  1. PROLIA [Suspect]
     Indication: OSTEOPOROSIS
     Dosage: 1 ml, q6mo
     Route: 058
     Dates: start: 20110919, end: 20110919
  2. ASPIRIN [Concomitant]
     Dosage: UNK UNK, qd
     Route: 048
  3. FLONASE [Concomitant]
     Indication: HYPERSENSITIVITY
     Dosage: 1 sp, qd
     Route: 045
  4. VITAMIN D                          /00318501/ [Concomitant]
     Indication: VITAMIN D DEFICIENCY
     Dosage: 200 unit, qd
     Route: 048
  5. VITAMIN B12                        /00056201/ [Concomitant]
     Indication: FATIGUE
     Dosage: 1000 UNK, qd
     Route: 048

REACTIONS (2)
  - Cognitive disorder [Not Recovered/Not Resolved]
  - Aphasia [Not Recovered/Not Resolved]
